FAERS Safety Report 8874140 (Version 2)
Quarter: 2012Q4

REPORT INFORMATION
  Report Type: 
  Country: US (occurrence: US)
  Receive Date: 20121023
  Receipt Date: 20121126
  Transmission Date: 20130627
  Serious: Yes (Hospitalization)
  Sender: FDA-Public Use
  Company Number: US-FRI-1000039577

PATIENT
  Age: 63 Year
  Sex: Female

DRUGS (14)
  1. VIIBRYD [Suspect]
     Indication: DEPRESSION
     Dosage: 10 mg
     Route: 048
     Dates: start: 201208, end: 2012
  2. VIIBRYD [Suspect]
     Dosage: 20 mg
     Route: 048
     Dates: start: 2012, end: 2012
  3. VIIBRYD [Suspect]
     Indication: DEPRESSION
     Dosage: 40 mg
     Route: 048
     Dates: start: 2012, end: 201209
  4. XYZAL [Concomitant]
     Indication: PRURITUS
  5. IMITREX [Concomitant]
     Indication: MIGRAINE
  6. SYNTHROID [Concomitant]
     Indication: HYPOTHYROIDISM
  7. XANAX [Concomitant]
     Indication: ANXIETY
  8. XANAX [Concomitant]
     Indication: INSOMNIA
  9. CALTRATE [Concomitant]
     Indication: OSTEOPENIA
  10. OMEPRAZOLE [Concomitant]
     Indication: GASTROOESOPHAGEAL REFLUX DISEASE
  11. LIPITOR [Concomitant]
     Indication: BLOOD CHOLESTEROL INCREASED
  12. AMBIEN [Concomitant]
     Indication: INSOMNIA
  13. REQUIP [Concomitant]
     Indication: RESTLESS LEGS SYNDROME
  14. AMITRIPTYLINE [Concomitant]
     Indication: INSOMNIA
     Dosage: 2 tabs QHS

REACTIONS (7)
  - Pancreatitis acute [Recovered/Resolved]
  - Hallucination [Recovered/Resolved]
  - Contusion [Recovered/Resolved]
  - Nausea [Recovered/Resolved]
  - Vomiting [Recovered/Resolved]
  - Headache [Recovered/Resolved]
  - Drug ineffective [Recovered/Resolved]
